FAERS Safety Report 8489326-2 (Version None)
Quarter: 2012Q3

REPORT INFORMATION
  Report Type: 
  Country: None (occurrence: None)
  Receive Date: 20120705
  Receipt Date: 20120702
  Transmission Date: 20120928
  Serious: Yes (Other)
  Sender: FDA-Public Use
  Company Number: US-BAYER-2012-065396

PATIENT
  Age: 33 Year
  Sex: Male

DRUGS (2)
  1. CIPROFLOXACIN HCL [Suspect]
     Indication: PROSTATITIS
     Dosage: 500 MG, BID
     Route: 048
  2. CIPROFLOXACIN HCL [Suspect]
     Dosage: 500 MG, UNK
     Route: 048

REACTIONS (3)
  - JOINT SWELLING [None]
  - TENDONITIS [None]
  - TENDON RUPTURE [None]
